FAERS Safety Report 8080341-X (Version None)
Quarter: 2012Q1

REPORT INFORMATION
  Report Type: 
  Country: None (occurrence: None)
  Receive Date: 20120130
  Receipt Date: 20120120
  Transmission Date: 20120608
  Serious: Yes (Death, Hospitalization)
  Sender: FDA-Public Use
  Company Number: JP-PFIZER INC-2010075233

PATIENT
  Age: 79 Year
  Sex: Female
  Weight: 44.2 kg

DRUGS (1)
  1. CELECOXIB [Suspect]
     Indication: OSTEOARTHRITIS
     Dosage: 200 MG, DAILY
     Route: 048
     Dates: start: 20071129, end: 20080912

REACTIONS (2)
  - STAPHYLOCOCCAL INFECTION [None]
  - CARDIAC FAILURE [None]
